FAERS Safety Report 25889087 (Version 1)
Quarter: 2025Q4

REPORT INFORMATION
  Report Type: Spontaneous
  Country: CN (occurrence: CN)
  Receive Date: 20251007
  Receipt Date: 20251007
  Transmission Date: 20260118
  Serious: Yes (Death, Other)
  Sender: AMGEN
  Company Number: CN-AMGEN-CHNSP2025194438

PATIENT

DRUGS (7)
  1. CARFILZOMIB [Suspect]
     Active Substance: CARFILZOMIB
     Indication: Oesophageal squamous cell carcinoma
     Dosage: 200 MILLIGRAM, Q3WK
     Route: 040
  2. CARFILZOMIB [Suspect]
     Active Substance: CARFILZOMIB
     Indication: Off label use
  3. TORIPALIMAB [Suspect]
     Active Substance: TORIPALIMAB
     Indication: Oesophageal squamous cell carcinoma
     Dosage: 240 MILLIGRAM, Q3WK
     Route: 040
  4. SINTILIMAB [Suspect]
     Active Substance: SINTILIMAB
     Indication: Oesophageal squamous cell carcinoma
     Dosage: 200 MILLIGRAM, Q3WK
     Route: 040
  5. CISPLATIN [Suspect]
     Active Substance: CISPLATIN
     Indication: Oesophageal squamous cell carcinoma
     Dosage: UNK
     Route: 065
  6. FLUOROURACIL [Suspect]
     Active Substance: FLUOROURACIL
     Indication: Oesophageal squamous cell carcinoma
     Dosage: UNK
     Route: 065
  7. PACLITAXEL [Suspect]
     Active Substance: PACLITAXEL
     Indication: Oesophageal squamous cell carcinoma
     Dosage: UNK
     Route: 065

REACTIONS (12)
  - Death [Fatal]
  - Anastomotic leak [Unknown]
  - Pneumonia [Unknown]
  - Pericardial effusion [Unknown]
  - Pneumothorax [Unknown]
  - Acute myocardial infarction [Unknown]
  - Acute respiratory failure [Unknown]
  - Atrial fibrillation [Unknown]
  - Atelectasis [Unknown]
  - Pleural effusion [Unknown]
  - Off label use [Unknown]
  - Drug effective for unapproved indication [Unknown]
